FAERS Safety Report 4850439-5 (Version None)
Quarter: 2005Q4

REPORT INFORMATION
  Report Type: 
  Country: None (occurrence: None)
  Receive Date: 20051123
  Receipt Date: 20051020
  Transmission Date: 20060501
  Serious: No
  Sender: FDA-Public Use
  Company Number: TPA2005A01301

PATIENT
  Sex: Female

DRUGS (1)
  1. ROZEREM [Suspect]

REACTIONS (1)
  - NIGHTMARE [None]
